FAERS Safety Report 8689535 (Version 2)
Quarter: 2012Q4

REPORT INFORMATION
  Report Type: 
  Country: US (occurrence: US)
  Receive Date: 20120727
  Receipt Date: 20121009
  Transmission Date: 20130627
  Serious: No
  Sender: FDA-Public Use
  Company Number: US-ASTRAZENECA-2011SE78970

PATIENT
  Age: 48 Year
  Sex: Male
  Weight: 111.1 kg

DRUGS (17)
  1. SEROQUEL [Suspect]
     Indication: SLEEP DISORDER
     Route: 048
  2. SEROQUEL [Suspect]
     Indication: DEPRESSION
     Route: 048
  3. SEROQUEL [Suspect]
     Indication: SCHIZOPHRENIA
     Route: 048
  4. SEROQUEL [Suspect]
     Indication: BIPOLAR DISORDER
     Route: 048
  5. SEROQUEL [Suspect]
     Indication: SLEEP DISORDER
     Route: 048
  6. SEROQUEL [Suspect]
     Indication: DEPRESSION
     Route: 048
  7. SEROQUEL [Suspect]
     Indication: SCHIZOPHRENIA
     Route: 048
  8. SEROQUEL [Suspect]
     Indication: BIPOLAR DISORDER
     Route: 048
  9. WATER PILL [Concomitant]
  10. ATENOLOL [Concomitant]
  11. BUSPAR [Concomitant]
     Indication: ANXIETY
  12. BUSPAR [Concomitant]
     Indication: DEPRESSION
  13. CAPTOPRIL [Concomitant]
  14. CITALOPRAM [Concomitant]
     Indication: DEPRESSION
  15. MEDICATIONS [Concomitant]
  16. PRAVASTATIN [Concomitant]
     Indication: BLOOD CHOLESTEROL ABNORMAL
  17. THREE BLOOD PRESSURE MEDICATIONS UNKNOWN NAME [Concomitant]
     Indication: HYPERTENSION

REACTIONS (13)
  - Aphagia [Unknown]
  - Feeling cold [Unknown]
  - Headache [Unknown]
  - Abdominal discomfort [Unknown]
  - Gastroenteritis viral [Unknown]
  - Hyperhidrosis [Unknown]
  - Withdrawal syndrome [Recovered/Resolved]
  - Dyspnoea [Unknown]
  - Muscle spasms [Unknown]
  - Dizziness [Unknown]
  - Somnolence [Unknown]
  - Drug dose omission [Recovered/Resolved]
  - Off label use [Unknown]
